FAERS Safety Report 14206709 (Version 3)
Quarter: 2018Q1

REPORT INFORMATION
  Report Type: Report from Study
  Country: US (occurrence: US)
  Receive Date: 20171121
  Receipt Date: 20180213
  Transmission Date: 20180508
  Serious: Yes (Hospitalization)
  Sender: FDA-Public Use
  Company Number: PHEH2017US037393

PATIENT
  Sex: Female
  Weight: 133.8 kg

DRUGS (3)
  1. COSENTYX [Suspect]
     Active Substance: SECUKINUMAB
     Dosage: 150 MG, QMO (EVERY 4 WEEKS)
     Route: 058
  2. COSENTYX [Suspect]
     Active Substance: SECUKINUMAB
     Dosage: 300 MG, UNK
     Route: 065
  3. COSENTYX [Suspect]
     Active Substance: SECUKINUMAB
     Indication: ANKYLOSING SPONDYLITIS
     Dosage: 150 MG, QW
     Route: 058

REACTIONS (9)
  - Blood pressure increased [Unknown]
  - Gastrointestinal pain [Unknown]
  - Swelling face [Unknown]
  - Pharyngeal oedema [Unknown]
  - Abdominal discomfort [Unknown]
  - Hypotension [Unknown]
  - Heart rate increased [Unknown]
  - Drug ineffective [Unknown]
  - Chest discomfort [Unknown]
